FAERS Safety Report 15132382 (Version 2)
Quarter: 2018Q3

REPORT INFORMATION
  Report Type: Report from Study
  Country: None (occurrence: US)
  Receive Date: 20180711
  Receipt Date: 20180712
  Transmission Date: 20181010
  Serious: Yes (Other)
  Sender: FDA-Public Use
  Company Number: US-ABBVIE-17K-163-2051169-00

PATIENT
  Age: 50 Year
  Sex: Female

DRUGS (5)
  1. HUMIRA [Suspect]
     Active Substance: ADALIMUMAB
     Indication: ANKYLOSING SPONDYLITIS
     Route: 058
     Dates: start: 20170309, end: 2017
  2. HUMIRA [Suspect]
     Active Substance: ADALIMUMAB
     Indication: CROHN^S DISEASE
     Route: 058
  3. LISINOPRIL. [Concomitant]
     Active Substance: LISINOPRIL
     Indication: PRODUCT USED FOR UNKNOWN INDICATION
     Route: 048
  4. HUMIRA [Suspect]
     Active Substance: ADALIMUMAB
     Indication: COLITIS ULCERATIVE
     Route: 058
     Dates: end: 201806
  5. ROSUVASTATIN. [Concomitant]
     Active Substance: ROSUVASTATIN
     Indication: BLOOD CHOLESTEROL

REACTIONS (32)
  - Intervertebral disc protrusion [Unknown]
  - Hepatic steatosis [Unknown]
  - Sinusitis [Not Recovered/Not Resolved]
  - Energy increased [Unknown]
  - Hemiplegia [Unknown]
  - Malaise [Not Recovered/Not Resolved]
  - Fall [Unknown]
  - Gastroenteritis viral [Unknown]
  - Colitis ulcerative [Unknown]
  - Autoimmune hepatitis [Unknown]
  - Spondylolisthesis [Unknown]
  - Fibromyalgia [Unknown]
  - Abdominal discomfort [Unknown]
  - Condition aggravated [Unknown]
  - Rheumatoid arthritis [Unknown]
  - Dizziness [Unknown]
  - Nerve compression [Unknown]
  - Tinnitus [Unknown]
  - Facial paralysis [Unknown]
  - Ankylosing spondylitis [Unknown]
  - Immunodeficiency [Unknown]
  - Intervertebral disc degeneration [Unknown]
  - Viral infection [Unknown]
  - Vertigo [Unknown]
  - Fall [Unknown]
  - Viral infection [Recovering/Resolving]
  - Nausea [Unknown]
  - Influenza [Unknown]
  - Gout [Unknown]
  - Hypoaesthesia [Unknown]
  - Lethargy [Unknown]
  - Crohn^s disease [Unknown]

NARRATIVE: CASE EVENT DATE: 2017
